FAERS Safety Report 8048930-6 (Version None)
Quarter: 2012Q1

REPORT INFORMATION
  Report Type: 
  Country: None (occurrence: None)
  Receive Date: 20120117
  Receipt Date: 20120110
  Transmission Date: 20120608
  Serious: Yes (Disabling, Other)
  Sender: FDA-Public Use
  Company Number: JP-PFIZER INC-2011260593

PATIENT
  Age: 77 Year
  Sex: Male
  Weight: 56 kg

DRUGS (4)
  1. XALATAN [Suspect]
     Indication: GLAUCOMA
     Dosage: 1X/DAY, IN RIGHT EYE
     Route: 047
     Dates: start: 20060101, end: 20081223
  2. XALATAN [Suspect]
     Indication: INTRAOCULAR PRESSURE INCREASED
     Dosage: 4X/DAY OR MORE, IN RIGHT EYE
     Route: 047
     Dates: start: 20081225, end: 20090129
  3. DICLOD [Concomitant]
     Indication: PROPHYLAXIS
     Route: 047
  4. LEVOFLOXACIN [Concomitant]
     Route: 047

REACTIONS (2)
  - CONJUNCTIVAL HYPERAEMIA [None]
  - CORNEAL DISORDER [None]
